FAERS Safety Report 7871679-7 (Version None)
Quarter: 2011Q4

REPORT INFORMATION
  Report Type: 
  Country: None (occurrence: None)
  Receive Date: 20111029
  Receipt Date: 20110307
  Transmission Date: 20120403
  Serious: No
  Sender: FDA-Public Use
  Company Number: US-AMGEN-USASP2011012762

PATIENT
  Age: 53 Year
  Sex: Female

DRUGS (1)
  1. ENBREL [Suspect]
     Indication: RHEUMATOID ARTHRITIS
     Dates: start: 20110131, end: 20110301

REACTIONS (4)
  - TOOTHACHE [None]
  - VOMITING [None]
  - TOOTH DISORDER [None]
  - GINGIVAL INFECTION [None]
